FAERS Safety Report 16331801 (Version 3)
Quarter: 2022Q3

REPORT INFORMATION
  Report Type: Report from Study
  Country: US (occurrence: US)
  Receive Date: 20190520
  Receipt Date: 20220916
  Transmission Date: 20221026
  Serious: Yes (Death)
  Sender: FDA-Public Use
  Company Number: US-ACADIA PHARMACEUTICALS INC.-ACA-2019-012339

PATIENT
  Age: 82 Year
  Sex: Male

DRUGS (2)
  1. NUPLAZID [Suspect]
     Active Substance: PIMAVANSERIN TARTRATE
     Indication: Parkinson^s disease
     Dosage: 34 MG, QD
     Route: 048
     Dates: start: 20190417
  2. NUPLAZID [Suspect]
     Active Substance: PIMAVANSERIN TARTRATE
     Indication: Parkinson^s disease psychosis
     Dosage: 10 MG, QD
     Route: 048
     Dates: start: 20190318

REACTIONS (3)
  - Parkinson^s disease [Fatal]
  - Hallucination [Not Recovered/Not Resolved]
  - Prescribed underdose [Unknown]

NARRATIVE: CASE EVENT DATE: 20190301
